FAERS Safety Report 13490388 (Version 1)
Quarter: 2017Q2

REPORT INFORMATION
  Report Type: Spontaneous
  Country: PL (occurrence: PL)
  Receive Date: 20170427
  Receipt Date: 20170427
  Transmission Date: 20170830
  Serious: Yes (Hospitalization, Other)
  Sender: FDA-Public Use
  Company Number: PL-ROCHE-1922140

PATIENT
  Age: 56 Year
  Sex: Female

DRUGS (6)
  1. TRASTUZUMAB [Suspect]
     Active Substance: TRASTUZUMAB
     Indication: BREAST CANCER METASTATIC
     Route: 065
     Dates: start: 20160902
  2. DOCETAXEL. [Suspect]
     Active Substance: DOCETAXEL
     Indication: BREAST CANCER METASTATIC
     Route: 065
     Dates: start: 20160902
  3. PERJETA [Suspect]
     Active Substance: PERTUZUMAB
     Route: 065
     Dates: start: 20160923
  4. DOCETAXEL. [Suspect]
     Active Substance: DOCETAXEL
     Route: 065
     Dates: start: 20160923
  5. PERJETA [Suspect]
     Active Substance: PERTUZUMAB
     Indication: BREAST CANCER METASTATIC
     Route: 065
     Dates: start: 20160902
  6. TRASTUZUMAB [Suspect]
     Active Substance: TRASTUZUMAB
     Route: 065
     Dates: start: 20160923

REACTIONS (15)
  - Haemoglobin decreased [Unknown]
  - Hypophagia [Unknown]
  - Muscle abscess [Unknown]
  - Pyrexia [Unknown]
  - Staphylococcus test positive [Unknown]
  - Leukocytosis [Unknown]
  - Infection [Unknown]
  - Neutropenia [Unknown]
  - Spinal pain [Unknown]
  - Sepsis [Unknown]
  - Procalcitonin increased [Recovered/Resolved]
  - Paraparesis [Unknown]
  - Pain in extremity [Unknown]
  - C-reactive protein increased [Unknown]
  - Febrile neutropenia [Unknown]
